FAERS Safety Report 6981648-7 (Version None)
Quarter: 2010Q3

REPORT INFORMATION
  Report Type: 
  Country: None (occurrence: None)
  Receive Date: 20100914
  Receipt Date: 20090225
  Transmission Date: 20110219
  Serious: Yes (Other)
  Sender: FDA-Public Use
  Company Number: US-PFIZER INC-2008073747

PATIENT
  Sex: Male
  Weight: 68 kg

DRUGS (13)
  1. LYRICA [Suspect]
     Indication: POST HERPETIC NEURALGIA
     Dosage: 75 MG, UNK
     Route: 048
     Dates: start: 20080827, end: 20080830
  2. ZAROXOLYN [Suspect]
     Dosage: 5 MG, 1X/DAY
     Route: 048
  3. WARFARIN SODIUM [Concomitant]
  4. LANOXIN [Concomitant]
     Dosage: 0.25 MG, 1X/DAY
  5. VASOTEC [Concomitant]
     Dosage: 5 MG, 2X/DAY
  6. LOPRESSOR [Concomitant]
     Dosage: 50 MG, 2X/DAY
  7. ALL OTHER THERAPEUTIC PRODUCTS [Concomitant]
     Indication: CARDIAC DISORDER
  8. TEGRETOL-XR [Concomitant]
     Dosage: 100 MG, 3X/DAY
     Route: 048
  9. LIDODERM [Concomitant]
     Dosage: 5 %, UNK
  10. PATANOL [Concomitant]
     Dosage: 0.1 %, UNK
  11. FLONASE [Concomitant]
     Dosage: UNK
  12. PRILOSEC [Concomitant]
     Dosage: 40 MG, 1X/DAY
     Route: 048
  13. LASIX [Concomitant]
     Dosage: 40 MG, 1X/DAY
     Route: 048

REACTIONS (12)
  - BALANCE DISORDER [None]
  - DIPLOPIA [None]
  - DISSOCIATION [None]
  - DIZZINESS [None]
  - FALL [None]
  - FEELING ABNORMAL [None]
  - GAIT DISTURBANCE [None]
  - INJURY [None]
  - IRITIS [None]
  - MENTAL IMPAIRMENT [None]
  - NERVOUSNESS [None]
  - VISION BLURRED [None]
